FAERS Safety Report 20018018 (Version 1)
Quarter: 2021Q4

REPORT INFORMATION
  Report Type: Spontaneous
  Country: US (occurrence: US)
  Receive Date: 20211101
  Receipt Date: 20211101
  Transmission Date: 20220303
  Serious: Yes (Death, Hospitalization)
  Sender: FDA-Public Use
  Company Number: US-JNJFOC-20211047208

PATIENT
  Age: 47 Year
  Sex: Female
  Weight: 86 kg

DRUGS (4)
  1. TYLENOL [Suspect]
     Active Substance: ACETAMINOPHEN
     Indication: Product used for unknown indication
     Route: 048
  2. ZOLOFT [Concomitant]
     Active Substance: SERTRALINE HYDROCHLORIDE
     Indication: Product used for unknown indication
     Route: 065
  3. SYNTHROID [Concomitant]
     Active Substance: LEVOTHYROXINE SODIUM
     Indication: Product used for unknown indication
     Dosage: 100 MICROGRAM PER DAY
     Route: 065
  4. PREDNISONE [Concomitant]
     Active Substance: PREDNISONE
     Indication: Product used for unknown indication
     Dosage: PER DAY FOR 12 MONTHS
     Route: 065
     Dates: end: 20000331

REACTIONS (6)
  - Acute hepatic failure [Fatal]
  - Pancreatitis [Fatal]
  - Staphylococcal infection [Fatal]
  - Escherichia infection [Fatal]
  - Chest X-ray abnormal [Fatal]
  - Accidental overdose [Fatal]
